FAERS Safety Report 24536756 (Version 1)
Quarter: 2024Q4

REPORT INFORMATION
  Report Type: Spontaneous
  Country: US (occurrence: US)
  Receive Date: 20241022
  Receipt Date: 20241022
  Transmission Date: 20250115
  Serious: No
  Sender: SANOFI AVENTIS
  Company Number: US-SA-2024SA301629

PATIENT
  Age: 85 Year
  Sex: Female

DRUGS (2)
  1. LANTUS [Suspect]
     Active Substance: INSULIN GLARGINE
     Indication: Type 1 diabetes mellitus
     Dosage: 12 UNITS , QD
  2. LANTUS [Suspect]
     Active Substance: INSULIN GLARGINE
     Dosage: 6 IU, BID

REACTIONS (2)
  - Drug ineffective [Unknown]
  - Off label use [Unknown]
